FAERS Safety Report 24697201 (Version 2)
Quarter: 2025Q1

REPORT INFORMATION
  Report Type: Spontaneous
  Country: US (occurrence: US)
  Receive Date: 20241204
  Receipt Date: 20250110
  Transmission Date: 20250408
  Serious: No
  Sender: Harrow Health
  Company Number: US-IMP-2024001069

PATIENT
  Age: 66 Year
  Sex: Female

DRUGS (1)
  1. VEVYE [Suspect]
     Active Substance: CYCLOSPORINE
     Indication: Product used for unknown indication
     Route: 047
     Dates: start: 20241020, end: 20241120

REACTIONS (3)
  - Drug hypersensitivity [Recovered/Resolved]
  - Erythema of eyelid [Recovered/Resolved]
  - Therapy interrupted [Unknown]

NARRATIVE: CASE EVENT DATE: 20241105
